FAERS Safety Report 13278214 (Version 1)
Quarter: 2017Q1

REPORT INFORMATION
  Report Type: Spontaneous
  Country: CH (occurrence: CH)
  Receive Date: 20170228
  Receipt Date: 20170228
  Transmission Date: 20170428
  Serious: Yes (Death, Other)
  Sender: FDA-Public Use
  Company Number: CH-JNJFOC-20161205298

PATIENT
  Age: 52 Year
  Sex: Male
  Weight: 72.8 kg

DRUGS (3)
  1. XARELTO [Suspect]
     Active Substance: RIVAROXABAN
     Indication: PRODUCT USED FOR UNKNOWN INDICATION
     Route: 048
     Dates: start: 20160628
  2. ELTROXIN [Concomitant]
     Active Substance: LEVOTHYROXINE
     Route: 048
  3. METOPROLOL SUCCINATE. [Concomitant]
     Active Substance: METOPROLOL SUCCINATE
     Route: 048

REACTIONS (3)
  - Traumatic haemorrhage [Fatal]
  - Road traffic accident [Fatal]
  - Off label use [Unknown]

NARRATIVE: CASE EVENT DATE: 20160928
